FAERS Safety Report 14576968 (Version 1)
Quarter: 2018Q1

REPORT INFORMATION
  Report Type: Spontaneous
  Country: US (occurrence: US)
  Receive Date: 20180225
  Receipt Date: 20180225
  Transmission Date: 20180509
  Serious: Yes (Other)
  Sender: FDA-Public Use
  Company Number: None

PATIENT
  Sex: Female

DRUGS (1)
  1. DEXTROAMPHET SACCHARAT, AMPHET ASPARTATE, DEXTROAMPHET SULFATE AND AMPHET SULFAT [Suspect]
     Active Substance: AMPHETAMINE ASPARTATE\AMPHETAMINE SULFATE\DEXTROAMPHETAMINE SACCHARATE\DEXTROAMPHETAMINE SULFATE
     Dosage: ?          QUANTITY:1 TABLET(S);?
     Route: 048

REACTIONS (11)
  - Anger [None]
  - Anxiety [None]
  - Product substitution issue [None]
  - Loss of personal independence in daily activities [None]
  - Fatigue [None]
  - Drug ineffective [None]
  - Suicidal ideation [None]
  - Depression [None]
  - Product taste abnormal [None]
  - Emotional disorder [None]
  - Insurance issue [None]

NARRATIVE: CASE EVENT DATE: 20171201
